FAERS Safety Report 16903851 (Version 1)
Quarter: 2019Q4

REPORT INFORMATION
  Report Type: Spontaneous
  Country: US (occurrence: US)
  Receive Date: 20191010
  Receipt Date: 20191010
  Transmission Date: 20200122
  Serious: No
  Sender: FDA-Public Use
  Company Number: US-TEVA-2019-US-1120835

PATIENT
  Sex: Female

DRUGS (1)
  1. METHYLPHENIDATE HYDROCHLORIDE TEVA [Suspect]
     Active Substance: METHYLPHENIDATE HYDROCHLORIDE
     Route: 065

REACTIONS (7)
  - Dizziness [Unknown]
  - Palpitations [Unknown]
  - Nightmare [Unknown]
  - Product substitution issue [Unknown]
  - Stress [Unknown]
  - Insomnia [Unknown]
  - Drug intolerance [Unknown]
